FAERS Safety Report 18728380 (Version 1)
Quarter: 2021Q1

REPORT INFORMATION
  Report Type: Spontaneous
  Country: ES (occurrence: ES)
  Receive Date: 20210112
  Receipt Date: 20210112
  Transmission Date: 20210419
  Serious: Yes (Hospitalization)
  Sender: FDA-Public Use
  Company Number: ES-TEVA-2021-ES-1866125

PATIENT
  Sex: Male

DRUGS (2)
  1. CARBOPLATINO (2323A) [Suspect]
     Active Substance: CARBOPLATIN
     Route: 065
     Dates: start: 202009, end: 2020
  2. PEMETREXED (2944A) [Suspect]
     Active Substance: PEMETREXED
     Route: 065
     Dates: start: 202009, end: 2020

REACTIONS (1)
  - Febrile neutropenia [Not Recovered/Not Resolved]

NARRATIVE: CASE EVENT DATE: 202010
